FAERS Safety Report 16126563 (Version 5)
Quarter: 2019Q3

REPORT INFORMATION
  Report Type: Spontaneous
  Country: US (occurrence: US)
  Receive Date: 20190328
  Receipt Date: 20190805
  Transmission Date: 20191004
  Serious: No
  Sender: FDA-Public Use
  Company Number: PHEH2019US013622

PATIENT
  Sex: Female
  Weight: 63.49 kg

DRUGS (3)
  1. ZOFRAN [Suspect]
     Active Substance: ONDANSETRON HYDROCHLORIDE
     Indication: HYPEREMESIS GRAVIDARUM
     Dosage: 04 MG, PRN
     Route: 042
     Dates: start: 20070207, end: 20070208
  2. ZOFRAN [Suspect]
     Active Substance: ONDANSETRON HYDROCHLORIDE
     Indication: HYPEREMESIS GRAVIDARUM
     Dosage: 04 MG, PRN
     Route: 048
     Dates: start: 20070303, end: 20070314
  3. ZOFRAN [Suspect]
     Active Substance: ONDANSETRON HYDROCHLORIDE
     Indication: HYPEREMESIS GRAVIDARUM
     Dosage: 04 MG, PRN
     Route: 048
     Dates: start: 20070209, end: 20070219

REACTIONS (5)
  - Injury [Unknown]
  - Maternal exposure during pregnancy [Unknown]
  - Product use in unapproved indication [Unknown]
  - Breech presentation [Unknown]
  - Emotional distress [Unknown]
